FAERS Safety Report 13988850 (Version 1)
Quarter: 2017Q3

REPORT INFORMATION
  Report Type: Spontaneous
  Country: US (occurrence: US)
  Receive Date: 20170919
  Receipt Date: 20170919
  Transmission Date: 20171128
  Serious: No
  Sender: FDA-Public Use
  Company Number: None

PATIENT

DRUGS (1)
  1. PENICILLIN [Suspect]
     Active Substance: PENICILLIN

REACTIONS (1)
  - Drug hypersensitivity [None]
